FAERS Safety Report 5730084-X (Version None)
Quarter: 2008Q2

REPORT INFORMATION
  Report Type: 
  Country: None (occurrence: None)
  Receive Date: 20080505
  Receipt Date: 20080505
  Transmission Date: 20081010
  Serious: Yes (Other)
  Sender: FDA-Public Use
  Company Number: None

PATIENT
  Sex: Female
  Weight: 86.1834 kg

DRUGS (2)
  1. BYSTOLIC [Suspect]
     Indication: HYPERTENSION
     Dosage: 5MG 1 A DAY
     Dates: start: 20080401
  2. LOPRESSOR [Suspect]
     Indication: HYPERTENSION
     Dosage: 10 / 40MG 1 A DAY
     Dates: start: 20080301

REACTIONS (1)
  - BLOOD PRESSURE INCREASED [None]
